FAERS Safety Report 5471144-0 (Version None)
Quarter: 2007Q3

REPORT INFORMATION
  Report Type: 
  Country: None (occurrence: None)
  Receive Date: 20070925
  Receipt Date: 20070911
  Transmission Date: 20080115
  Serious: Yes (Hospitalization)
  Sender: FDA-Public Use
  Company Number: 2007BI010365

PATIENT
  Age: 37 Year
  Sex: Male

DRUGS (8)
  1. NATALIZUMAB [Suspect]
     Indication: MULTIPLE SCLEROSIS
     Dosage: 300 MG;QM;IV
     Route: 042
     Dates: start: 20070201
  2. CALAN [Concomitant]
  3. PAMELOR [Concomitant]
  4. NEURONTIN [Concomitant]
  5. VALTREX [Concomitant]
  6. EFFEXOR [Concomitant]
  7. ASPIRIN [Concomitant]
  8. FISH OIL [Concomitant]

REACTIONS (2)
  - CONVULSION [None]
  - MULTIPLE SCLEROSIS RELAPSE [None]
